FAERS Safety Report 13617869 (Version 1)
Quarter: 2017Q2

REPORT INFORMATION
  Report Type: Spontaneous
  Country: MX (occurrence: MX)
  Receive Date: 20170606
  Receipt Date: 20170606
  Transmission Date: 20170830
  Serious: Yes (Other)
  Sender: FDA-Public Use
  Company Number: MX-PFIZER INC-2017247743

PATIENT
  Sex: Female

DRUGS (3)
  1. KRIADEX [Concomitant]
  2. MICARDIS [Concomitant]
     Active Substance: TELMISARTAN
  3. LYRICA [Suspect]
     Active Substance: PREGABALIN
     Dosage: UNK

REACTIONS (2)
  - Speech disorder [Not Recovered/Not Resolved]
  - Abasia [Not Recovered/Not Resolved]
